FAERS Safety Report 7355352-X (Version None)
Quarter: 2011Q1

REPORT INFORMATION
  Report Type: 
  Country: None (occurrence: None)
  Receive Date: 20110316
  Receipt Date: 20110307
  Transmission Date: 20110831
  Serious: Yes (Other)
  Sender: FDA-Public Use
  Company Number: US-BAXTER-2011BH006034

PATIENT

DRUGS (6)
  1. VINCRISTINE [Suspect]
     Indication: B-CELL LYMPHOMA
     Route: 042
  2. IODINE SOLUTION [Concomitant]
     Indication: PROPHYLAXIS
     Route: 065
  3. IODINE [Suspect]
     Indication: B-CELL LYMPHOMA
     Route: 065
  4. PREDNISONE [Suspect]
     Indication: B-CELL LYMPHOMA
     Route: 048
  5. TOSITUMOMAB [Suspect]
     Indication: B-CELL LYMPHOMA
     Route: 065
  6. CYCLOPHOSPHAMIDE [Suspect]
     Indication: B-CELL LYMPHOMA
     Route: 048

REACTIONS (2)
  - BASAL CELL CARCINOMA [None]
  - SQUAMOUS CELL CARCINOMA [None]
